FAERS Safety Report 7048725-6 (Version None)
Quarter: 2010Q4

REPORT INFORMATION
  Report Type: 
  Country: None (occurrence: None)
  Receive Date: 20101018
  Receipt Date: 20101007
  Transmission Date: 20110411
  Serious: Yes (Hospitalization)
  Sender: FDA-Public Use
  Company Number: US-BIOGENIDEC-2010BI017905

PATIENT
  Age: 36 Year
  Sex: Female

DRUGS (1)
  1. TYSABRI [Suspect]
     Indication: MULTIPLE SCLEROSIS
     Route: 042
     Dates: start: 20090812, end: 20100428

REACTIONS (8)
  - AMNESIA [None]
  - APHASIA [None]
  - COGNITIVE DISORDER [None]
  - CONFUSIONAL STATE [None]
  - FEELING HOT [None]
  - HEADACHE [None]
  - LOSS OF CONTROL OF LEGS [None]
  - MULTIPLE SCLEROSIS RELAPSE [None]
